FAERS Safety Report 7907721-4 (Version None)
Quarter: 2011Q4

REPORT INFORMATION
  Report Type: 
  Country: None (occurrence: None)
  Receive Date: 20111110
  Receipt Date: 20111028
  Transmission Date: 20120403
  Serious: Yes (Life-Threatening, Hospitalization, Other)
  Sender: FDA-Public Use
  Company Number: HU-ELI_LILLY_AND_COMPANY-HU201110003171

PATIENT
  Age: 30 Year
  Sex: Male

DRUGS (5)
  1. CONVULEX [Concomitant]
     Dosage: 300 MG, TID
  2. ZYPREXA [Suspect]
     Indication: SCHIZOPHRENIA
     Dosage: 10 MG, BID
     Dates: start: 20080101
  3. CLONAZEPAM [Concomitant]
  4. KEMADRIN [Concomitant]
  5. MELIPRAMIN [Concomitant]

REACTIONS (10)
  - GRAND MAL CONVULSION [None]
  - PROTEINURIA [None]
  - HEAD INJURY [None]
  - FALL [None]
  - INAPPROPRIATE ANTIDIURETIC HORMONE SECRETION [None]
  - BLOOD CHLORIDE DECREASED [None]
  - HYPOTENSION [None]
  - POLYURIA [None]
  - PNEUMONIA [None]
  - POLYDIPSIA [None]
